FAERS Safety Report 4634747-9 (Version None)
Quarter: 2005Q2

REPORT INFORMATION
  Report Type: 
  Country: None (occurrence: None)
  Receive Date: 20050412
  Receipt Date: 20050412
  Transmission Date: 20051028
  Serious: Yes (Life-Threatening)
  Sender: FDA-Public Use
  Company Number: None

PATIENT
  Age: 84 Year
  Sex: Female
  Weight: 66.6788 kg

DRUGS (6)
  1. IRON DEXTRAN [Suspect]
     Indication: ANAEMIA
     Dosage: 25 MG X1 IV
     Route: 042
     Dates: start: 20040706, end: 20040706
  2. DILTIAZEM CD [Concomitant]
  3. DIGOXIN [Concomitant]
  4. PROCRIT [Concomitant]
  5. PACERONE [Concomitant]
  6. XOPENEX [Concomitant]

REACTIONS (2)
  - ANAPHYLACTIC REACTION [None]
  - RESPIRATORY ARREST [None]
